FAERS Safety Report 8044599-5 (Version None)
Quarter: 2012Q1

REPORT INFORMATION
  Report Type: 
  Country: None (occurrence: None)
  Receive Date: 20120113
  Receipt Date: 20120113
  Transmission Date: 20120608
  Serious: Yes (Hospitalization)
  Sender: FDA-Public Use
  Company Number: None

PATIENT
  Age: 69 Year
  Sex: Female
  Weight: 90.264 kg

DRUGS (1)
  1. EVISTA [Suspect]
     Indication: BONE DENSITY DECREASED
     Dosage: 1 TABLET
     Route: 048

REACTIONS (1)
  - CEREBROVASCULAR ACCIDENT [None]
